FAERS Safety Report 4437683-6 (Version None)
Quarter: 2004Q3

REPORT INFORMATION
  Report Type: 
  Country: None (occurrence: None)
  Receive Date: 20040831
  Receipt Date: 20040209
  Transmission Date: 20050211
  Serious: No
  Sender: FDA-Public Use
  Company Number: 15649

PATIENT
  Age: 66 Year
  Sex: Female

DRUGS (3)
  1. ZOVIRAX [Suspect]
     Dosage: 1APP SIX TIMES PER DAY
     Route: 061
     Dates: start: 20040123, end: 20040129
  2. VALTREX [Concomitant]
     Route: 048
  3. ESTRATEST [Concomitant]

REACTIONS (3)
  - DRUG INEFFECTIVE [None]
  - ERYTHEMA [None]
  - SKIN IRRITATION [None]
